FAERS Safety Report 7805512-6 (Version None)
Quarter: 2011Q4

REPORT INFORMATION
  Report Type: 
  Country: None (occurrence: None)
  Receive Date: 20111010
  Receipt Date: 20111004
  Transmission Date: 20120403
  Serious: Yes (Other)
  Sender: FDA-Public Use
  Company Number: PHHO2010CA05607

PATIENT
  Sex: Male
  Weight: 86.2 kg

DRUGS (4)
  1. IBUPROFEN (ADVIL) [Concomitant]
     Indication: BACK PAIN
     Dosage: UNK
     Dates: start: 20040301
  2. GILENYA [Suspect]
     Indication: MULTIPLE SCLEROSIS
     Dosage: 1.25 MG, UNK
     Route: 048
     Dates: start: 20040726, end: 20100713
  3. CYCLOBENZAPRINE [Concomitant]
     Indication: BACK PAIN
     Dosage: UNK
     Dates: start: 20070901
  4. DICLOFENAC [Concomitant]
     Dosage: UNK
     Dates: start: 20090112

REACTIONS (2)
  - BOWEN'S DISEASE [None]
  - SKIN LESION [None]
